FAERS Safety Report 19661122 (Version 2)
Quarter: 2022Q1

REPORT INFORMATION
  Report Type: Spontaneous
  Country: US (occurrence: US)
  Receive Date: 20210805
  Receipt Date: 20220121
  Transmission Date: 20220423
  Serious: No
  Sender: FDA-Public Use
  Company Number: US-GLENMARK PHARMACEUTICALS-2021GMK053722

PATIENT

DRUGS (4)
  1. ADAPALENE [Suspect]
     Active Substance: ADAPALENE
     Indication: Chloasma
     Dosage: UNK, QD (USED EVERY DAY IN THE BEGINNING FOR 2-3 WEEKS)
     Route: 065
     Dates: start: 202011, end: 2020
  2. ADAPALENE [Suspect]
     Active Substance: ADAPALENE
     Indication: Acne
     Dosage: QOD (USED EVERY OTHER DAY, AMOUNT USED WAS LESS THAN PEA SIZE AMOUNT)
     Route: 065
     Dates: start: 2020, end: 202103
  3. ADAPALENE [Suspect]
     Active Substance: ADAPALENE
     Indication: Milia
  4. SALICYLIC ACID [Suspect]
     Active Substance: SALICYLIC ACID
     Indication: Product used for unknown indication
     Dosage: UNK
     Route: 065

REACTIONS (6)
  - Skin exfoliation [Recovering/Resolving]
  - Dry skin [Recovering/Resolving]
  - Erythema [Recovering/Resolving]
  - Burning sensation [Recovering/Resolving]
  - Drug ineffective [Unknown]
  - Drug ineffective for unapproved indication [Unknown]
